FAERS Safety Report 10267416 (Version 1)
Quarter: 2014Q2

REPORT INFORMATION
  Report Type: Spontaneous
  Country: US (occurrence: US)
  Receive Date: 20140630
  Receipt Date: 20140630
  Transmission Date: 20141212
  Serious: Yes (Hospitalization)
  Sender: FDA-Public Use
  Company Number: US-MYLANLABS-2014S1014756

PATIENT
  Age: 78 Year
  Sex: Female

DRUGS (4)
  1. SALBUTAMOL [Suspect]
     Indication: ACCIDENTAL OVERDOSE
     Dosage: REPEATEDLY USED SALBUTAMOL SEVERAL TIMES, INCLUDING AT LEAST FOUR TIMES IN 12 HOURS
     Route: 055
  2. SALBUTAMOL [Suspect]
     Indication: CHRONIC OBSTRUCTIVE PULMONARY DISEASE
     Dosage: REPEATEDLY USED SALBUTAMOL SEVERAL TIMES, INCLUDING AT LEAST FOUR TIMES IN 12 HOURS
     Route: 055
  3. SALBUTAMOL [Suspect]
     Indication: ACCIDENTAL OVERDOSE
     Dosage: UP TO TWO TIMES A DAY, ONLY AS NEEDED
     Route: 055
  4. SALBUTAMOL [Suspect]
     Indication: CHRONIC OBSTRUCTIVE PULMONARY DISEASE
     Dosage: UP TO TWO TIMES A DAY, ONLY AS NEEDED
     Route: 055

REACTIONS (2)
  - Accidental overdose [Recovered/Resolved]
  - Stress cardiomyopathy [Recovered/Resolved]
